FAERS Safety Report 5190014-9 (Version None)
Quarter: 2006Q4

REPORT INFORMATION
  Report Type: 
  Country: None (occurrence: None)
  Receive Date: 20061221
  Receipt Date: 20061121
  Transmission Date: 20070319
  Serious: Yes (Life-Threatening, Other)
  Sender: FDA-Public Use
  Company Number: US-ELI_LILLY_AND_COMPANY-US200611004757

PATIENT
  Age: 50 Year
  Sex: Male
  Weight: 85.26 kg

DRUGS (7)
  1. CYMBALTA [Suspect]
     Indication: PAIN
     Dosage: 60 MG, UNK
     Dates: start: 20060817, end: 20061018
  2. ROXICODONE [Concomitant]
     Dosage: 5 MG, UNK
     Dates: end: 20061117
  3. ZANAFLEX [Concomitant]
     Dosage: 8 MG, EVERY 8 HRS
     Dates: end: 20060918
  4. ADVAIR DISKUS 100/50 [Concomitant]
     Dosage: 1 D/F, 2/D
  5. TEMAZEPAM [Concomitant]
     Dates: start: 20060410
  6. ALBUTEROL [Concomitant]
  7. PREVACID [Concomitant]
     Dosage: 30 MG, DAILY (1/D)

REACTIONS (6)
  - ALANINE AMINOTRANSFERASE INCREASED [None]
  - ASPARTATE AMINOTRANSFERASE INCREASED [None]
  - BLOOD ALKALINE PHOSPHATASE INCREASED [None]
  - BLOOD BILIRUBIN INCREASED [None]
  - GAMMA-GLUTAMYLTRANSFERASE INCREASED [None]
  - JAUNDICE [None]
